FAERS Safety Report 15249633 (Version 1)
Quarter: 2018Q3

REPORT INFORMATION
  Report Type: Spontaneous
  Country: US (occurrence: US)
  Receive Date: 20180807
  Receipt Date: 20180807
  Transmission Date: 20181010
  Serious: No
  Sender: FDA-Public Use
  Company Number: US-PERRIGO-18US006195

PATIENT
  Sex: Male
  Weight: 82.54 kg

DRUGS (2)
  1. LORATADINE. [Suspect]
     Active Substance: LORATADINE
     Indication: SEASONAL ALLERGY
     Dosage: 10 MG, QD DURING ALLERGY SEASON
     Route: 048
  2. ANTIHYPERTENSIVES [Concomitant]
     Active Substance: UNSPECIFIED INGREDIENT
     Indication: BLOOD PRESSURE INCREASED
     Dosage: UNK
     Route: 065

REACTIONS (1)
  - Somnolence [Unknown]
